FAERS Safety Report 4479284-X (Version None)
Quarter: 2004Q4

REPORT INFORMATION
  Report Type: 
  Country: None (occurrence: None)
  Receive Date: 20041019
  Receipt Date: 20041019
  Transmission Date: 20050328
  Serious: Yes (Life-Threatening, Disabling)
  Sender: FDA-Public Use
  Company Number: None

PATIENT
  Age: 26 Year
  Sex: Female
  Weight: 81.6475 kg

DRUGS (2)
  1. EFFEXOR [Suspect]
     Indication: PERSONALITY DISORDER
     Dosage: 150 MG 1 DAILY
     Dates: start: 20040501
  2. EFFEXOR [Suspect]
     Indication: AFFECTIVE DISORDER
     Dosage: 37.5 MG 1 DAILY

REACTIONS (9)
  - ANOREXIA [None]
  - CONFUSIONAL STATE [None]
  - DIARRHOEA [None]
  - DIZZINESS [None]
  - DRUG DEPENDENCE [None]
  - MUSCLE TWITCHING [None]
  - PARAESTHESIA [None]
  - VISION BLURRED [None]
  - VOMITING [None]
